FAERS Safety Report 7987505-1 (Version None)
Quarter: 2011Q4

REPORT INFORMATION
  Report Type: 
  Country: None (occurrence: None)
  Receive Date: 20111216
  Receipt Date: 20111212
  Transmission Date: 20120403
  Serious: Yes (Death, Hospitalization)
  Sender: FDA-Public Use
  Company Number: PHHY2011GR93167

PATIENT
  Sex: Female

DRUGS (3)
  1. EVEROLIMUS [Suspect]
     Indication: METASTATIC RENAL CELL CARCINOMA
     Dosage: 10 MG, UNK
     Route: 048
     Dates: start: 20110412, end: 20111019
  2. ZOMETA [Concomitant]
     Indication: METASTASES TO BONE
     Dosage: 4 MG, ONCE Q3 WEEKS
  3. RED BLOOD CELLS [Concomitant]
     Indication: ANAEMIA
     Dosage: ONE UNIT
     Route: 065
     Dates: start: 20111020

REACTIONS (11)
  - LETHARGY [None]
  - NEOPLASM PROGRESSION [None]
  - PYREXIA [None]
  - HYPOTENSION [None]
  - HYPOCALCAEMIA [None]
  - FATIGUE [None]
  - NEOPLASM MALIGNANT [None]
  - SEPSIS [None]
  - METABOLIC ACIDOSIS [None]
  - HYPOXIA [None]
  - DEHYDRATION [None]
